FAERS Safety Report 12120657 (Version 1)
Quarter: 2016Q1

REPORT INFORMATION
  Report Type: Spontaneous
  Country: US (occurrence: US)
  Receive Date: 20160226
  Receipt Date: 20160226
  Transmission Date: 20160526
  Serious: No
  Sender: FDA-Public Use
  Company Number: US-ALLERGAN-1403330US

PATIENT
  Age: 80 Year
  Sex: Female

DRUGS (4)
  1. SYSTANE GEL [Concomitant]
     Indication: DRY EYE
     Dosage: UNK
  2. REFRESH OPTIVE [Suspect]
     Active Substance: CARBOXYMETHYLCELLULOSE SODIUM\GLYCERIN
     Indication: DRY EYE
     Dosage: 2 GTT, SINGLE
     Route: 047
     Dates: start: 20140219, end: 20140219
  3. SALINE EYE WASH [Concomitant]
     Indication: PRODUCT USED FOR UNKNOWN INDICATION
     Dosage: UNK
  4. SYSTANE LIQUID [Concomitant]
     Indication: DRY EYE
     Dosage: UNK

REACTIONS (2)
  - Headache [Unknown]
  - Eye irritation [Recovered/Resolved]

NARRATIVE: CASE EVENT DATE: 20140219
